FAERS Safety Report 9939190 (Version 1)
Quarter: 2014Q1

REPORT INFORMATION
  Report Type: Report from Study
  Country: US (occurrence: US)
  Receive Date: 20140303
  Receipt Date: 20140303
  Transmission Date: 20141002
  Serious: Yes (Other)
  Sender: FDA-Public Use
  Company Number: US-ASTELLAS-2014US002136

PATIENT
  Sex: Female

DRUGS (7)
  1. ERLOTINIB TABLET [Suspect]
     Indication: BRONCHIAL CARCINOMA
     Dosage: 75 MG, UID/QD
     Route: 048
     Dates: start: 2013
  2. ERLOTINIB TABLET [Suspect]
     Dosage: 75 MG (HALF TABLET), UID/QD
     Route: 048
     Dates: start: 2013, end: 20140201
  3. WARFARIN                           /00014802/ [Concomitant]
     Indication: ATRIAL FIBRILLATION
     Dosage: 2.5 MG, UNKNOWN/D
     Route: 048
  4. SIMVASTATIN [Concomitant]
     Indication: PRODUCT USED FOR UNKNOWN INDICATION
     Dosage: 10 MG, UID/QD
     Route: 048
  5. FUROSEMIDE [Concomitant]
     Indication: PRODUCT USED FOR UNKNOWN INDICATION
     Dosage: 20 MG, UID/QD
     Route: 048
  6. AMIODARONE [Concomitant]
     Indication: PRODUCT USED FOR UNKNOWN INDICATION
     Dosage: 200 MG, UID/QD
     Route: 048
  7. ATENOLOL [Concomitant]
     Indication: ATRIAL FIBRILLATION
     Dosage: 25 MG, 2 IN ONE WEEK
     Route: 048

REACTIONS (12)
  - Incorrect dose administered [Unknown]
  - Wrong technique in drug usage process [Unknown]
  - Eye disorder [Recovering/Resolving]
  - Eye swelling [Recovered/Resolved]
  - Lip swelling [Unknown]
  - Eye pain [Recovered/Resolved]
  - Onychomycosis [Not Recovered/Not Resolved]
  - Chapped lips [Unknown]
  - Ocular hyperaemia [Recovered/Resolved]
  - Onychomadesis [Not Recovered/Not Resolved]
  - Alopecia [Not Recovered/Not Resolved]
  - Rash [Recovering/Resolving]
